FAERS Safety Report 17735331 (Version 19)
Quarter: 2023Q4

REPORT INFORMATION
  Report Type: Report from Study
  Country: CA (occurrence: CA)
  Receive Date: 20200501
  Receipt Date: 20231006
  Transmission Date: 20240109
  Serious: Yes (Hospitalization, Other)
  Sender: FDA-Public Use
  Company Number: PHHY2019CA124695

PATIENT
  Age: 56 Year
  Sex: Male

DRUGS (3)
  1. SANDOSTATIN LAR DEPOT [Suspect]
     Active Substance: OCTREOTIDE ACETATE
     Indication: Carcinoid tumour
     Dosage: 30 MG, Q3W
     Route: 030
     Dates: start: 20190522
  2. SANDOSTATIN LAR DEPOT [Suspect]
     Active Substance: OCTREOTIDE ACETATE
     Dosage: 30 MG, Q3W (EVERY 3 WEEK)
     Route: 030
     Dates: start: 2020
  3. SANDOSTATIN LAR DEPOT [Suspect]
     Active Substance: OCTREOTIDE ACETATE

REACTIONS (20)
  - Post procedural infection [Recovered/Resolved]
  - Haematochezia [Unknown]
  - Hepatic vascular thrombosis [Unknown]
  - Carcinoid tumour [Unknown]
  - Malignant neoplasm progression [Unknown]
  - Gastrointestinal infection [Unknown]
  - Blood pressure increased [Unknown]
  - Blood pressure diastolic increased [Unknown]
  - Blood pressure diastolic decreased [Unknown]
  - Nasopharyngitis [Unknown]
  - Glossodynia [Unknown]
  - Oral discomfort [Unknown]
  - Malaise [Recovering/Resolving]
  - Hepatic lesion [Unknown]
  - Needle issue [Unknown]
  - Injection site haemorrhage [Unknown]
  - Abdominal pain [Unknown]
  - Fatigue [Recovering/Resolving]
  - Injection site pain [Unknown]
  - Inappropriate schedule of product administration [Unknown]

NARRATIVE: CASE EVENT DATE: 20190101
